FAERS Safety Report 7442979-X (Version None)
Quarter: 2011Q2

REPORT INFORMATION
  Report Type: 
  Country: None (occurrence: None)
  Receive Date: 20110428
  Receipt Date: 20110411
  Transmission Date: 20111010
  Serious: Yes (Other)
  Sender: FDA-Public Use
  Company Number: FR-MERCK-1104FRA00053

PATIENT
  Age: 86 Year
  Sex: Male

DRUGS (19)
  1. PRIMAXIN [Suspect]
     Route: 042
     Dates: start: 20100914, end: 20100917
  2. MORPHINE [Concomitant]
     Indication: PAIN
     Route: 042
  3. POTASSIUM CHLORIDE [Concomitant]
     Indication: MINERAL SUPPLEMENTATION
     Route: 048
     Dates: end: 20100917
  4. FUROSEMIDE [Concomitant]
     Route: 042
  5. SPIRONOLACTONE [Concomitant]
     Route: 048
     Dates: end: 20100917
  6. TERBUTALINE SULFATE [Concomitant]
     Indication: ASTHMA
     Route: 055
  7. SCOPOLAMINE HYDROBROMIDE [Suspect]
     Indication: PALLIATIVE CARE
     Route: 058
     Dates: start: 20100917, end: 20100917
  8. TRAMADOL HCL [Suspect]
     Indication: BACK PAIN
     Route: 048
     Dates: start: 20100917, end: 20100917
  9. INSULIN HUMAN, ISOPHANE [Concomitant]
     Indication: DIABETES MELLITUS
     Route: 058
  10. IRBESARTAN [Concomitant]
     Indication: HYPERTENSION
     Route: 048
  11. FLUTICASONE PROPIONATE AND SALMETEROL XINAFOATE [Concomitant]
     Indication: ASTHMA
     Route: 055
  12. ACETAMINOPHEN [Concomitant]
     Indication: PAIN
     Route: 042
  13. ACETYLCYSTEINE [Concomitant]
     Indication: INCREASED VISCOSITY OF BRONCHIAL SECRETION
     Route: 048
  14. ASPIRIN LYSINE [Concomitant]
     Route: 048
  15. IPRATROPIUM BROMIDE [Concomitant]
     Indication: CHRONIC OBSTRUCTIVE PULMONARY DISEASE
     Route: 055
  16. DILTIAZEM HYDROCHLORIDE [Concomitant]
     Indication: ANGINA PECTORIS
     Route: 048
     Dates: end: 20100917
  17. ITRACONAZOLE [Concomitant]
     Route: 048
  18. METHYLPREDNISOLONE SODIUM SUCCINATE [Concomitant]
     Route: 042
     Dates: end: 20100917
  19. ENOXAPARIN SODIUM [Concomitant]
     Indication: THROMBOSIS PROPHYLAXIS
     Route: 058

REACTIONS (3)
  - AGITATION [None]
  - HALLUCINATION [None]
  - DELIRIUM [None]
